FAERS Safety Report 20323313 (Version 1)
Quarter: 2022Q1

REPORT INFORMATION
  Report Type: Spontaneous
  Country: US (occurrence: US)
  Receive Date: 20220111
  Receipt Date: 20220111
  Transmission Date: 20220423
  Serious: No
  Sender: FDA-Public Use
  Company Number: US-NOVOPROD-852354

PATIENT
  Age: 51 Year
  Sex: Male

DRUGS (3)
  1. RYBELSUS [Suspect]
     Active Substance: SEMAGLUTIDE
     Dosage: 14 MG, QD
     Route: 048
     Dates: start: 20210915
  2. RYBELSUS [Suspect]
     Active Substance: SEMAGLUTIDE
     Indication: Type 2 diabetes mellitus
     Dosage: UNK
     Route: 048
     Dates: start: 202107, end: 202108
  3. RYBELSUS [Suspect]
     Active Substance: SEMAGLUTIDE
     Dosage: DOSE DECREASED
     Route: 048
     Dates: start: 202109

REACTIONS (3)
  - Illness [Unknown]
  - Vomiting [Not Recovered/Not Resolved]
  - Product dose omission issue [Recovered/Resolved]

NARRATIVE: CASE EVENT DATE: 20210101
